FAERS Safety Report 21188971 (Version 2)
Quarter: 2022Q3

REPORT INFORMATION
  Report Type: Report from Study
  Country: CN (occurrence: CN)
  Receive Date: 20220809
  Receipt Date: 20220818
  Transmission Date: 20221026
  Serious: Yes (Hospitalization, Other)
  Sender: FDA-Public Use
  Company Number: CN-BRISTOL-MYERS SQUIBB COMPANY-2022-084422

PATIENT
  Age: 72 Year
  Sex: Male
  Weight: 60.1 kg

DRUGS (13)
  1. CARBOPLATIN [Suspect]
     Active Substance: CARBOPLATIN
     Indication: Oesophageal squamous cell carcinoma
     Dosage: AUC5^
     Route: 042
     Dates: start: 20220303, end: 20220303
  2. CARBOPLATIN [Suspect]
     Active Substance: CARBOPLATIN
     Route: 042
     Dates: start: 20220325, end: 20220325
  3. CARBOPLATIN [Suspect]
     Active Substance: CARBOPLATIN
     Route: 042
     Dates: start: 20220423, end: 20220423
  4. PACLITAXEL [Suspect]
     Active Substance: PACLITAXEL
     Indication: Oesophageal squamous cell carcinoma
     Route: 042
     Dates: start: 20220303, end: 20220303
  5. PACLITAXEL [Suspect]
     Active Substance: PACLITAXEL
     Route: 042
     Dates: start: 20220325, end: 20220325
  6. PACLITAXEL [Suspect]
     Active Substance: PACLITAXEL
     Route: 042
     Dates: start: 20220423, end: 20220423
  7. CAMRELIZUMAB [Suspect]
     Active Substance: CAMRELIZUMAB
     Indication: Oesophageal squamous cell carcinoma
     Route: 042
     Dates: start: 20220303, end: 20220303
  8. CAMRELIZUMAB [Suspect]
     Active Substance: CAMRELIZUMAB
     Route: 042
     Dates: start: 20220325, end: 20220325
  9. CAMRELIZUMAB [Suspect]
     Active Substance: CAMRELIZUMAB
     Route: 042
     Dates: start: 20220423, end: 20220423
  10. APATINIB [Suspect]
     Active Substance: APATINIB
     Indication: Oesophageal squamous cell carcinoma
     Route: 048
     Dates: start: 20220303, end: 20220303
  11. APATINIB [Suspect]
     Active Substance: APATINIB
     Route: 048
     Dates: start: 20220325, end: 20220325
  12. APATINIB [Suspect]
     Active Substance: APATINIB
     Route: 048
     Dates: start: 20220423, end: 20220423
  13. APATINIB [Suspect]
     Active Substance: APATINIB
     Route: 048
     Dates: end: 20220510

REACTIONS (1)
  - Hepatic failure [Recovered/Resolved]

NARRATIVE: CASE EVENT DATE: 20220413
